FAERS Safety Report 6560420-6 (Version None)
Quarter: 2010Q1

REPORT INFORMATION
  Report Type: 
  Country: None (occurrence: None)
  Receive Date: 20100129
  Receipt Date: 20050301
  Transmission Date: 20100710
  Serious: No
  Sender: FDA-Public Use
  Company Number: US-ALLERGAN-200501913

PATIENT
  Age: 51 Year
  Sex: Female
  Weight: 106.82 kg

DRUGS (2)
  1. BOTOX [Suspect]
     Indication: TORTICOLLIS
     Dosage: 100UNITS, PRN
     Route: 030
  2. WELLBUTRIN [Concomitant]
     Indication: DRUG USE FOR UNKNOWN INDICATION

REACTIONS (14)
  - DIABETES MELLITUS [None]
  - DYSGEUSIA [None]
  - DYSPNOEA [None]
  - EYE SWELLING [None]
  - FACIAL PARESIS [None]
  - FATIGUE [None]
  - HEADACHE [None]
  - LACRIMATION INCREASED [None]
  - NAUSEA [None]
  - PHOTOSENSITIVITY REACTION [None]
  - SWELLING FACE [None]
  - TACHYCARDIA [None]
  - VERTIGO [None]
  - WRONG TECHNIQUE IN DRUG USAGE PROCESS [None]
